FAERS Safety Report 12070568 (Version 6)
Quarter: 2016Q3

REPORT INFORMATION
  Report Type: Report from Study
  Country: US (occurrence: US)
  Receive Date: 20160211
  Receipt Date: 20160906
  Transmission Date: 20161109
  Serious: Yes (Hospitalization, Other)
  Sender: FDA-Public Use
  Company Number: US-JNJFOC-20160208429

PATIENT
  Age: 82 Year
  Sex: Female

DRUGS (12)
  1. VANCOMYCIN [Concomitant]
     Active Substance: VANCOMYCIN
  2. IMBRUVICA [Suspect]
     Active Substance: IBRUTINIB
     Indication: CHRONIC LYMPHOCYTIC LEUKAEMIA
     Route: 048
     Dates: start: 20160420, end: 20160503
  3. LEVAQUIN [Suspect]
     Active Substance: LEVOFLOXACIN
     Indication: PRODUCT USED FOR UNKNOWN INDICATION
     Route: 048
     Dates: start: 20160121, end: 2016
  4. PREDNISONE. [Concomitant]
     Active Substance: PREDNISONE
     Route: 048
     Dates: start: 20151212, end: 20160220
  5. ELIQUIS [Concomitant]
     Active Substance: APIXABAN
  6. CEFEPIME [Concomitant]
     Active Substance: CEFEPIME HYDROCHLORIDE
  7. PREDNISONE. [Concomitant]
     Active Substance: PREDNISONE
     Route: 048
     Dates: start: 20160221
  8. IMBRUVICA [Suspect]
     Active Substance: IBRUTINIB
     Indication: CHRONIC LYMPHOCYTIC LEUKAEMIA
     Route: 048
     Dates: start: 20160504, end: 20160624
  9. IMBRUVICA [Suspect]
     Active Substance: IBRUTINIB
     Indication: CHRONIC LYMPHOCYTIC LEUKAEMIA
     Route: 048
     Dates: start: 20151203, end: 20160109
  10. ONDANSETRON [Concomitant]
     Active Substance: ONDANSETRON
  11. ATENOLOL. [Concomitant]
     Active Substance: ATENOLOL
     Route: 048
     Dates: start: 20160106
  12. WARFARIN SODIUM. [Concomitant]
     Active Substance: WARFARIN SODIUM
     Route: 048
     Dates: start: 20151118

REACTIONS (13)
  - Hepatitis [Recovered/Resolved]
  - Upper respiratory tract infection [Recovering/Resolving]
  - Pyelonephritis [Unknown]
  - Pruritus [Unknown]
  - Pulmonary embolism [Recovering/Resolving]
  - Drug hypersensitivity [Not Recovered/Not Resolved]
  - Rhinovirus infection [Unknown]
  - Urinary tract infection [Recovering/Resolving]
  - Deep vein thrombosis [Recovering/Resolving]
  - Sepsis [Recovering/Resolving]
  - Pneumonia viral [Unknown]
  - Anaemia [Unknown]
  - Disease progression [Unknown]

NARRATIVE: CASE EVENT DATE: 20160123
